FAERS Safety Report 4619092-X (Version None)
Quarter: 2005Q1

REPORT INFORMATION
  Report Type: 
  Country: None (occurrence: None)
  Receive Date: 20050318
  Receipt Date: 20050318
  Transmission Date: 20050727
  Serious: Yes (Hospitalization)
  Sender: FDA-Public Use
  Company Number: None

PATIENT
  Sex: Male
  Weight: 94.8018 kg

DRUGS (10)
  1. TRILEPTAL [Suspect]
     Indication: CONVULSION
     Dosage: 150 MG PO TID [PRIOR TO ADMISSION]
     Route: 048
  2. SYNTHROID [Concomitant]
  3. FOLIC ACID [Concomitant]
  4. PROTONIX [Concomitant]
  5. ASPIRIN [Concomitant]
  6. NEPHROVITE [Concomitant]
  7. VALTREX [Concomitant]
  8. RENAGEL [Concomitant]
  9. PLAVIX [Concomitant]
  10. TOBRADEX [Concomitant]

REACTIONS (8)
  - ASTHENIA [None]
  - BLOOD PRESSURE ORTHOSTATIC ABNORMAL [None]
  - CONFUSIONAL STATE [None]
  - COORDINATION ABNORMAL [None]
  - DIZZINESS [None]
  - DYSPHAGIA [None]
  - DYSTONIA [None]
  - SPEECH DISORDER [None]
